FAERS Safety Report 4981827-4 (Version None)
Quarter: 2006Q2

REPORT INFORMATION
  Report Type: 
  Country: None (occurrence: None)
  Receive Date: 20060420
  Receipt Date: 20060420
  Transmission Date: 20061013
  Serious: Yes (Death)
  Sender: FDA-Public Use
  Company Number: None

PATIENT
  Age: 60 Year
  Sex: Female
  Weight: 63.5036 kg

DRUGS (2)
  1. FENTANYL [Suspect]
     Indication: BACK PAIN
     Dosage: 1 PATCH   EVERY 72 HOURS   TRANSDERMAL
     Route: 062
     Dates: start: 20060329, end: 20060331
  2. FENTANYL [Suspect]
     Indication: SCIATICA
     Dosage: 1 PATCH   EVERY 72 HOURS   TRANSDERMAL
     Route: 062
     Dates: start: 20060329, end: 20060331

REACTIONS (1)
  - DEATH [None]
